FAERS Safety Report 25073624 (Version 1)
Quarter: 2025Q1

REPORT INFORMATION
  Report Type: Spontaneous
  Country: MY (occurrence: MY)
  Receive Date: 20250313
  Receipt Date: 20250313
  Transmission Date: 20250409
  Serious: Yes (Other)
  Sender: CSL BEHRING
  Company Number: MY-BEH-2025198577

PATIENT

DRUGS (1)
  1. PRIVIGEN [Suspect]
     Active Substance: HUMAN IMMUNOGLOBULIN G
     Indication: Rheumatic disorder
     Route: 042

REACTIONS (3)
  - Haemorrhage intracranial [Unknown]
  - Basal ganglia haemorrhage [Unknown]
  - Off label use [Unknown]
